FAERS Safety Report 16002896 (Version 1)
Quarter: 2019Q1

REPORT INFORMATION
  Report Type: Spontaneous
  Country: US (occurrence: US)
  Receive Date: 20190225
  Receipt Date: 20190225
  Transmission Date: 20190418
  Serious: No
  Sender: FDA-Public Use
  Company Number: US-SA-2019SA048263

PATIENT

DRUGS (4)
  1. ARAVA [Suspect]
     Active Substance: LEFLUNOMIDE
     Dosage: UNK
     Route: 065
     Dates: start: 2011, end: 2013
  2. METHOTREXATE. [Suspect]
     Active Substance: METHOTREXATE
     Dosage: UNK
     Route: 065
     Dates: start: 20170716, end: 20170911
  3. METHOTREXATE. [Suspect]
     Active Substance: METHOTREXATE
     Dosage: UNK
     Route: 065
     Dates: start: 2010, end: 2011
  4. HUMIRA [Suspect]
     Active Substance: ADALIMUMAB
     Dosage: UNK
     Route: 058
     Dates: start: 2013

REACTIONS (5)
  - Asthenia [Unknown]
  - Drug effect decreased [Unknown]
  - Dizziness [Unknown]
  - Drug ineffective [Unknown]
  - Malaise [Unknown]
